FAERS Safety Report 7502475-8 (Version None)
Quarter: 2011Q2

REPORT INFORMATION
  Report Type: 
  Country: None (occurrence: None)
  Receive Date: 20110525
  Receipt Date: 20110516
  Transmission Date: 20111010
  Serious: Yes (Other)
  Sender: FDA-Public Use
  Company Number: DZ-NOVOPROD-327335

PATIENT
  Age: 14 Year
  Sex: Female
  Weight: 46 kg

DRUGS (2)
  1. PREDNISOLON                        /00016201/ [Concomitant]
     Indication: RENAL DISORDER
     Dosage: 30 MG, EVERY SECOND DAY
     Route: 048
  2. NORDITROPIN [Suspect]
     Indication: GROWTH HORMONE DEFICIENCY
     Dosage: 17 CLICK PER DAY
     Dates: end: 20110401

REACTIONS (5)
  - MUSCULOSKELETAL STIFFNESS [None]
  - INJECTION SITE RASH [None]
  - INJECTION SITE PAIN [None]
  - AMAUROSIS FUGAX [None]
  - PARAESTHESIA [None]
